FAERS Safety Report 24250362 (Version 1)
Quarter: 2024Q3

REPORT INFORMATION
  Report Type: Spontaneous
  Country: CN (occurrence: CN)
  Receive Date: 20240826
  Receipt Date: 20240826
  Transmission Date: 20241017
  Serious: Yes (Hospitalization)
  Sender: BEIGENE
  Company Number: CN-BEIGENE-BGN-2024-013000

PATIENT

DRUGS (6)
  1. TISLELIZUMAB [Suspect]
     Active Substance: TISLELIZUMAB
     Indication: Adenocarcinoma
     Dosage: 200 MILLIGRAM
     Route: 041
     Dates: start: 20240606
  2. TISLELIZUMAB [Suspect]
     Active Substance: TISLELIZUMAB
     Dosage: 200 MILLIGRAM
     Route: 041
     Dates: start: 20240627
  3. CAPECITABINE [Suspect]
     Active Substance: CAPECITABINE
     Indication: Adenocarcinoma
     Dosage: 1 GRAM, QD
     Route: 048
     Dates: start: 20240606
  4. CAPECITABINE [Suspect]
     Active Substance: CAPECITABINE
     Dosage: 1 GRAM, QD
     Route: 048
     Dates: start: 20240627
  5. IBUPROFEN [Suspect]
     Active Substance: IBUPROFEN
     Indication: Analgesic therapy
     Dosage: 300 MILLIGRAM, QD
     Route: 048
     Dates: start: 20240530, end: 20240622
  6. ILAPRAZOLE [Suspect]
     Active Substance: ILAPRAZOLE
     Indication: Prophylaxis of nausea and vomiting
     Dosage: 5 MILLIGRAM, QD
     Route: 048
     Dates: start: 20240519, end: 20240528

REACTIONS (1)
  - Tubulointerstitial nephritis [Recovering/Resolving]

NARRATIVE: CASE EVENT DATE: 20240802
